FAERS Safety Report 15486219 (Version 1)
Quarter: 2018Q4

REPORT INFORMATION
  Report Type: Spontaneous
  Country: ES (occurrence: ES)
  Receive Date: 20181011
  Receipt Date: 20181011
  Transmission Date: 20190205
  Serious: Yes (Disabling)
  Sender: FDA-Public Use
  Company Number: ES-ACCORD-073155

PATIENT
  Age: 80 Year
  Sex: Male

DRUGS (1)
  1. CAPECITABINE. [Suspect]
     Active Substance: CAPECITABINE
     Indication: RECTOSIGMOID CANCER
     Route: 048
     Dates: start: 20171211, end: 20180102

REACTIONS (1)
  - Retinal artery occlusion [Not Recovered/Not Resolved]

NARRATIVE: CASE EVENT DATE: 20171226
